FAERS Safety Report 9129969 (Version 1)
Quarter: 2013Q1

REPORT INFORMATION
  Report Type: Spontaneous
  Country: CH (occurrence: CH)
  Receive Date: 20130228
  Receipt Date: 20130228
  Transmission Date: 20140127
  Serious: Yes (Hospitalization)
  Sender: FDA-Public Use
  Company Number: PHHY2012CH127914

PATIENT
  Age: 35 None
  Sex: Female

DRUGS (4)
  1. TEGRETOL [Suspect]
     Indication: TRIGEMINAL NEURALGIA
     Dosage: 200 MG, BID
     Route: 048
     Dates: start: 20121104, end: 20121115
  2. VOLTAREN [Suspect]
     Dosage: 50 MG, BID
     Route: 048
     Dates: start: 20121112, end: 20121115
  3. DACLIXIMAB [Suspect]
     Indication: RELAPSING-REMITTING MULTIPLE SCLEROSIS
     Dosage: 150 MG, QMO
     Route: 051
     Dates: start: 20111214, end: 20121115
  4. SIRDALUD [Concomitant]
     Dosage: 6 MG, UNK
     Route: 048
     Dates: start: 20121112, end: 20121115

REACTIONS (4)
  - Lymphadenopathy [Recovering/Resolving]
  - Liver function test abnormal [Recovering/Resolving]
  - Leukopenia [Recovering/Resolving]
  - Thrombocytopenia [Recovered/Resolved]
